FAERS Safety Report 12648155 (Version 13)
Quarter: 2021Q2

REPORT INFORMATION
  Report Type: Report from Study
  Country: US (occurrence: US)
  Receive Date: 20160812
  Receipt Date: 20210617
  Transmission Date: 20210716
  Serious: Yes (Hospitalization, Other)
  Sender: FDA-Public Use
  Company Number: US-SA-2016SA072055

PATIENT
  Age: 29 Year
  Sex: Female
  Weight: 38.1 kg

DRUGS (15)
  1. VANDETANIB. [Suspect]
     Active Substance: VANDETANIB
     Dosage: UNK UNK, QD
     Route: 048
     Dates: start: 20120705
  2. VANDETANIB. [Suspect]
     Active Substance: VANDETANIB
     Dosage: 200 MG, QOD
     Route: 048
     Dates: start: 20120705
  3. CALCIUM [Concomitant]
     Active Substance: CALCIUM
     Dosage: 600 MG, PM
  4. ERGOCALCIFEROL. [Concomitant]
     Active Substance: ERGOCALCIFEROL
     Dosage: UNK
     Route: 048
  5. MAGNESIUM GLUCONATE [Concomitant]
     Active Substance: MAGNESIUM GLUCONATE
     Dosage: 200 MG, QD
  6. IMODIUM [Concomitant]
     Active Substance: LOPERAMIDE HYDROCHLORIDE
     Indication: DIARRHOEA
     Dosage: 12 MG, WITH MEALS
     Route: 048
  7. VANDETANIB. [Suspect]
     Active Substance: VANDETANIB
     Dosage: 100 MG, QOD
     Route: 048
     Dates: start: 20120705
  8. CALCIUM [Concomitant]
     Active Substance: CALCIUM
     Indication: BLOOD CALCIUM DECREASED
     Dosage: 1200 MG, AM
     Route: 048
  9. HCTZ [Concomitant]
     Active Substance: HYDROCHLOROTHIAZIDE
     Dosage: 25 MG, BID
  10. VANDETANIB. [Suspect]
     Active Substance: VANDETANIB
     Dosage: UNK UNK, QD
     Dates: start: 20120705
  11. ZENPEP [Concomitant]
     Active Substance: PANCRELIPASE AMYLASE\PANCRELIPASE LIPASE\PANCRELIPASE PROTEASE
     Dosage: 2 DF, WITH MEALS
  12. VANDETANIB. [Suspect]
     Active Substance: VANDETANIB
     Dosage: 100MG DAILY FOR 6 DAYS A WEEK, AND 200MG FOR 1 DAY A WEEK
     Route: 048
     Dates: start: 20120704, end: 20210604
  13. SYNTHROID [Concomitant]
     Active Substance: LEVOTHYROXINE SODIUM
     Indication: HYPOTHYROIDISM
     Dosage: 88 UG, QD
     Route: 048
  14. VANDETANIB. [Suspect]
     Active Substance: VANDETANIB
     Indication: THYROID CANCER
     Dosage: 100MG DAILY FOR 6 DAYS, 200MG DAILY FOR ONE WEEK
     Route: 048
     Dates: start: 20120702
  15. K?DUR [Concomitant]
     Active Substance: POTASSIUM CHLORIDE
     Dosage: 40 MEQ, BID

REACTIONS (26)
  - Nausea [Recovered/Resolved]
  - Calcium metabolism disorder [Unknown]
  - Constipation [Recovered/Resolved]
  - Blood calcium increased [Unknown]
  - Rash [Not Recovered/Not Resolved]
  - Muscle spasms [Unknown]
  - Vomiting [Recovered/Resolved]
  - Capillary disorder [Unknown]
  - Blood thyroid stimulating hormone increased [Unknown]
  - Hypoglycaemia [Unknown]
  - Headache [Not Recovered/Not Resolved]
  - Adverse drug reaction [Unknown]
  - Blood calcium abnormal [Unknown]
  - Blood electrolytes decreased [Unknown]
  - Hypotension [Unknown]
  - Tooth disorder [Unknown]
  - Epistaxis [Not Recovered/Not Resolved]
  - Hypocalcaemia [Unknown]
  - Blood pressure abnormal [Unknown]
  - Blood pressure increased [Unknown]
  - Tumour lysis syndrome [Recovered/Resolved]
  - Ear congestion [Unknown]
  - Dyspnoea [Unknown]
  - Diarrhoea [Not Recovered/Not Resolved]
  - Joint swelling [Unknown]
  - Skin discolouration [Unknown]

NARRATIVE: CASE EVENT DATE: 20120707
